FAERS Safety Report 13650779 (Version 1)
Quarter: 2017Q2

REPORT INFORMATION
  Report Type: Spontaneous
  Country: IT (occurrence: IT)
  Receive Date: 20170614
  Receipt Date: 20170614
  Transmission Date: 20170830
  Serious: Yes (Other)
  Sender: FDA-Public Use
  Company Number: IT-TEVA-777543ACC

PATIENT
  Age: 76 Year
  Sex: Male

DRUGS (7)
  1. OXALIPLATIN. [Suspect]
     Active Substance: OXALIPLATIN
     Dosage: 128 MG CYCLICAL
     Route: 042
     Dates: start: 20161015, end: 20170607
  2. MAGNESIO SOLFATO S.A.L.F. -  S.A.L.F. SPA LABORATORIO FARMACOLOGICO [Concomitant]
     Indication: PRODUCT USED FOR UNKNOWN INDICATION
     Dosage: 1 G
     Route: 042
     Dates: start: 20170607, end: 20170607
  3. TRIMETON - 10 MG/1 ML SOLUZIONE INIETTABILE - BAYER S.P.A. [Concomitant]
     Indication: ALLERGY PROPHYLAXIS
     Dosage: 10 MG
     Route: 042
     Dates: start: 20170607, end: 20170607
  4. GRANISETRON B. BRAUN - 1 MG/ML [Concomitant]
     Indication: PROPHYLAXIS OF NAUSEA AND VOMITING
     Dosage: 3 MG
     Route: 042
     Dates: start: 20170607, end: 20170607
  5. CALCIO GLUCONATO SALF - S.A.L.F. SPA LABORATORIO FARMACOLOGICO [Concomitant]
     Indication: PRODUCT USED FOR UNKNOWN INDICATION
     Dosage: 1 G
     Route: 042
     Dates: start: 20170607, end: 20170607
  6. DESAMETASONE FOSFATO HOSPIRA - 4MG/ML SOLUZIONE INIETTABILE [Concomitant]
     Active Substance: DEXAMETHASONE SODIUM PHOSPHATE
     Indication: ALLERGY PROPHYLAXIS
     Dosage: 4 MG
     Route: 042
     Dates: start: 20170607, end: 20170607
  7. OXALIPLATIN. [Suspect]
     Active Substance: OXALIPLATIN
     Indication: COLON NEOPLASM
     Dosage: 128 MG CYCLICAL
     Route: 042
     Dates: start: 20161015, end: 20170607

REACTIONS (4)
  - Palpitations [Recovered/Resolved]
  - Paraesthesia [Recovered/Resolved]
  - Abdominal pain upper [Recovered/Resolved]
  - Erythema [Recovered/Resolved]

NARRATIVE: CASE EVENT DATE: 20170607
